FAERS Safety Report 7830615-X (Version None)
Quarter: 2011Q4

REPORT INFORMATION
  Report Type: 
  Country: None (occurrence: None)
  Receive Date: 20111021
  Receipt Date: 20111012
  Transmission Date: 20120403
  Serious: Yes (Other)
  Sender: FDA-Public Use
  Company Number: DE-US-EMD SERONO, INC.-7089552

PATIENT
  Age: 41 Year
  Sex: Female

DRUGS (1)
  1. REBIF [Suspect]
     Indication: MULTIPLE SCLEROSIS
     Route: 058
     Dates: start: 20110901

REACTIONS (5)
  - OPTIC NEURITIS [None]
  - HYPERTENSION [None]
  - TACHYCARDIA [None]
  - TREMOR [None]
  - HYPERHIDROSIS [None]
